FAERS Safety Report 8622186-5 (Version None)
Quarter: 2012Q3

REPORT INFORMATION
  Report Type: 
  Country: None (occurrence: None)
  Receive Date: 20120826
  Receipt Date: 20120814
  Transmission Date: 20120928
  Serious: Yes (Other)
  Sender: FDA-Public Use
  Company Number: GB-BRISTOL-MYERS SQUIBB COMPANY-16861148

PATIENT
  Age: 27 Year
  Sex: Female

DRUGS (2)
  1. EFAVIRENZ [Suspect]
     Dates: start: 20110101
  2. TRUVADA [Suspect]
     Dates: start: 20110101

REACTIONS (2)
  - ABORTION INDUCED [None]
  - PREGNANCY [None]
